FAERS Safety Report 9120958 (Version 1)
Quarter: 2013Q1

REPORT INFORMATION
  Report Type: Spontaneous
  Country: US (occurrence: US)
  Receive Date: 20130226
  Receipt Date: 20130226
  Transmission Date: 20140127
  Serious: Yes (Other)
  Sender: FDA-Public Use
  Company Number: US-ROCHE-1195009

PATIENT
  Age: 66 Year
  Sex: 0

DRUGS (2)
  1. RITUXAN [Suspect]
     Indication: PRODUCT USED FOR UNKNOWN INDICATION
     Route: 065
  2. TREANDA [Concomitant]

REACTIONS (3)
  - Febrile neutropenia [Unknown]
  - Embolic stroke [Unknown]
  - Atrial fibrillation [Unknown]
